FAERS Safety Report 13365570 (Version 1)
Quarter: 2017Q1

REPORT INFORMATION
  Report Type: Spontaneous
  Country: US (occurrence: US)
  Receive Date: 20170323
  Receipt Date: 20170323
  Transmission Date: 20170429
  Serious: No
  Sender: FDA-Public Use
  Company Number: US-WARNER CHILCOTT-2016-001045

PATIENT
  Age: 79 Year
  Sex: Female

DRUGS (3)
  1. ESTRACE [Suspect]
     Active Substance: ESTRADIOL
     Indication: DYSURIA
  2. ESTRACE [Suspect]
     Active Substance: ESTRADIOL
     Indication: DYSURIA
     Dosage: ONE APPLICATOR FULL ONCE DAILY
     Route: 067
     Dates: start: 20160511, end: 20160514
  3. ANTIHYPERTENSIVES [Concomitant]
     Active Substance: UNSPECIFIED INGREDIENT
     Indication: HYPERTENSION
     Dosage: UNK UNK, UNKNOWN
     Route: 065

REACTIONS (5)
  - Musculoskeletal pain [Not Recovered/Not Resolved]
  - Product use issue [Unknown]
  - Neck pain [Not Recovered/Not Resolved]
  - Headache [Not Recovered/Not Resolved]
  - Photopsia [Not Recovered/Not Resolved]

NARRATIVE: CASE EVENT DATE: 20160511
